FAERS Safety Report 5139612-9 (Version None)
Quarter: 2006Q4

REPORT INFORMATION
  Report Type: 
  Country: None (occurrence: None)
  Receive Date: 20061024
  Receipt Date: 20061016
  Transmission Date: 20070319
  Serious: Yes (Hospitalization)
  Sender: FDA-Public Use
  Company Number: 805#1#2006-00101

PATIENT
  Age: 77 Year
  Sex: Male

DRUGS (2)
  1. ALPROSTADIL [Suspect]
     Indication: SPINAL COLUMN STENOSIS
     Dosage: 40 MCG (40 MCG 1 IN 1 DAY(S)), INTRAVENOUS DRIP
     Route: 041
     Dates: start: 20060916, end: 20060925
  2. SODIUM BICARBONATE IN PLASTIC CONTAINER [Concomitant]

REACTIONS (1)
  - RENAL FAILURE ACUTE [None]
